FAERS Safety Report 14147160 (Version 1)
Quarter: 2017Q4

REPORT INFORMATION
  Report Type: Spontaneous
  Country: US (occurrence: US)
  Receive Date: 20171031
  Receipt Date: 20171031
  Transmission Date: 20180321
  Serious: Yes (Hospitalization, Other)
  Sender: FDA-Public Use
  Company Number: US-TEVA-821190USA

PATIENT
  Age: 67 Year
  Sex: Female

DRUGS (9)
  1. LEUCOVORIN. [Suspect]
     Active Substance: LEUCOVORIN
     Dosage: 25 MG/M2
     Route: 042
     Dates: start: 20170912, end: 20170914
  2. METHOTREXATE. [Suspect]
     Active Substance: METHOTREXATE
     Dosage: 1000 MG/M2
     Route: 065
     Dates: start: 20170911, end: 20170911
  3. CYTARABINE. [Suspect]
     Active Substance: CYTARABINE
     Dosage: 300 MG/M2
     Route: 042
     Dates: start: 20170912, end: 20170913
  4. PIPERACILLIN AND TAZOBACTAM [Concomitant]
     Active Substance: PIPERACILLIN SODIUM\TAZOBACTAM SODIUM
  5. VINCRISTINE [Suspect]
     Active Substance: VINCRISTINE
     Route: 042
     Dates: start: 20170814, end: 20170814
  6. NEULASTIM [Suspect]
     Active Substance: PEGFILGRASTIM
     Dosage: 6MG IN 6 ML X INJ X 1 SYR
     Route: 058
     Dates: start: 20170915, end: 20170915
  7. CYCLOPHOSPHAMIDE. [Suspect]
     Active Substance: CYCLOPHOSPHAMIDE
     Dosage: 300 MG/M2
     Route: 042
     Dates: start: 20170811, end: 20170813
  8. GRANIX [Suspect]
     Active Substance: TBO-FILGRASTIM
     Route: 065
  9. CIPROFLOXACIN. [Concomitant]
     Active Substance: CIPROFLOXACIN

REACTIONS (3)
  - Neutropenia [Recovered/Resolved]
  - Urinary tract infection [Recovered/Resolved]
  - Febrile neutropenia [Recovered/Resolved]

NARRATIVE: CASE EVENT DATE: 20170823
